FAERS Safety Report 23630894 (Version 2)
Quarter: 2024Q1

REPORT INFORMATION
  Report Type: Spontaneous
  Country: US (occurrence: US)
  Receive Date: 20240314
  Receipt Date: 20240319
  Transmission Date: 20240410
  Serious: No
  Sender: FDA-Public Use
  Company Number: US-JNJFOC-20240313144

PATIENT
  Age: 24 Year
  Sex: Female

DRUGS (8)
  1. TYLENOL [Suspect]
     Active Substance: ACETAMINOPHEN
     Indication: Headache
     Route: 065
     Dates: start: 202402
  2. TYVASO DPI [Concomitant]
     Active Substance: TREPROSTINIL
     Indication: Pulmonary arterial hypertension
     Dosage: ROUTE: INHALATION?16 UG, 32 UG, AND 48 UG, AND THE CURRENT DOSE WAS REPORTED AS 16 UG,
     Route: 055
     Dates: start: 20240207, end: 20240208
  3. TYVASO DPI [Concomitant]
     Active Substance: TREPROSTINIL
     Dosage: ROUTE: INHALATION
     Route: 055
     Dates: start: 202402
  4. TYVASO DPI [Concomitant]
     Active Substance: TREPROSTINIL
     Dosage: ROUTE: INHALATION
     Route: 055
     Dates: start: 202402
  5. TYVASO DPI [Concomitant]
     Active Substance: TREPROSTINIL
     Dosage: ROUTE: INHALATION
     Route: 055
     Dates: start: 202402, end: 202402
  6. REMODULIN [Concomitant]
     Active Substance: TREPROSTINIL
     Indication: Pulmonary arterial hypertension
     Route: 042
     Dates: start: 202402
  7. OPSUMIT [Concomitant]
     Active Substance: MACITENTAN
     Indication: Product used for unknown indication
     Route: 065
  8. TADALAFIL [Concomitant]
     Active Substance: TADALAFIL
     Indication: Product used for unknown indication
     Route: 065

REACTIONS (2)
  - Exposure during pregnancy [Unknown]
  - Drug ineffective [Unknown]

NARRATIVE: CASE EVENT DATE: 20240201
